FAERS Safety Report 12627361 (Version 1)
Quarter: 2016Q3

REPORT INFORMATION
  Report Type: Report from Study
  Country: US (occurrence: US)
  Receive Date: 20160805
  Receipt Date: 20160805
  Transmission Date: 20161109
  Serious: No
  Sender: FDA-Public Use
  Company Number: US-AMGEN-USASL2015128039

PATIENT
  Age: 64 Year
  Sex: Female

DRUGS (1)
  1. NPLATE [Suspect]
     Active Substance: ROMIPLOSTIM
     Indication: IMMUNE THROMBOCYTOPENIC PURPURA
     Dosage: 2 MCG/KG, UNK
     Route: 065
     Dates: start: 201311

REACTIONS (8)
  - Rhinitis [Unknown]
  - Sleep disorder [Not Recovered/Not Resolved]
  - Cough [Unknown]
  - Arthritis [Unknown]
  - Headache [Recovering/Resolving]
  - Allergy to animal [Unknown]
  - Arthralgia [Unknown]
  - Upper respiratory tract infection [Unknown]
